FAERS Safety Report 21465225 (Version 1)
Quarter: 2022Q4

REPORT INFORMATION
  Report Type: Spontaneous
  Country: US (occurrence: None)
  Receive Date: 20221014
  Receipt Date: 20221014
  Transmission Date: 20230112
  Serious: Yes (Life-Threatening)
  Sender: FDA-Public Use
  Company Number: None

PATIENT
  Sex: Male

DRUGS (2)
  1. LISINOPRIL [Suspect]
     Active Substance: LISINOPRIL
     Indication: Cardiovascular disorder
     Dosage: FREQUENCY : TWICE A DAY;?
     Route: 048
     Dates: end: 20220417
  2. LISINOPRIL [Suspect]
     Active Substance: LISINOPRIL
     Indication: Surgery

REACTIONS (2)
  - Angioedema [None]
  - Stridor [None]

NARRATIVE: CASE EVENT DATE: 19490129
